FAERS Safety Report 14323537 (Version 1)
Quarter: 2017Q4

REPORT INFORMATION
  Report Type: Spontaneous
  Country: US (occurrence: US)
  Receive Date: 20171226
  Receipt Date: 20171226
  Transmission Date: 20180321
  Serious: Yes (Other)
  Sender: FDA-Public Use
  Company Number: US-DRREDDYS-USA/USA/17/0095177

PATIENT
  Sex: Female

DRUGS (1)
  1. FEXOFENADINE HCL [Suspect]
     Active Substance: FEXOFENADINE HYDROCHLORIDE
     Indication: HYPERSENSITIVITY
     Route: 048

REACTIONS (7)
  - Drug ineffective [Unknown]
  - Retching [Unknown]
  - Sneezing [Unknown]
  - Cough [Unknown]
  - Lacrimal disorder [Recovering/Resolving]
  - Choking [Unknown]
  - Product quality issue [Unknown]
